FAERS Safety Report 19621395 (Version 1)
Quarter: 2021Q3

REPORT INFORMATION
  Report Type: Spontaneous
  Country: US (occurrence: US)
  Receive Date: 20210619
  Receipt Date: 20210619
  Transmission Date: 20211014
  Serious: No
  Sender: FDA-Public Use
  Company Number: None

PATIENT
  Age: 43 Year
  Sex: Female
  Weight: 68.85 kg

DRUGS (9)
  1. B2 [Concomitant]
  2. AIMOVIG [Suspect]
     Active Substance: ERENUMAB-AOOE
  3. AJOVY [Suspect]
     Active Substance: FREMANEZUMAB-VFRM
     Indication: MIGRAINE
  4. UBRELVY [Suspect]
     Active Substance: UBROGEPANT
  5. FLONASE [Concomitant]
     Active Substance: FLUTICASONE PROPIONATE
  6. BIOTIN [Concomitant]
     Active Substance: BIOTIN
  7. LYRICA [Concomitant]
     Active Substance: PREGABALIN
  8. EMGALITY [Suspect]
     Active Substance: GALCANEZUMAB-GNLM
  9. ZYRTEC [Concomitant]
     Active Substance: CETIRIZINE HYDROCHLORIDE

REACTIONS (1)
  - Weight increased [None]
